FAERS Safety Report 25449876 (Version 1)
Quarter: 2025Q2

REPORT INFORMATION
  Report Type: Spontaneous
  Country: US (occurrence: US)
  Receive Date: 20250618
  Receipt Date: 20250618
  Transmission Date: 20250716
  Serious: No
  Sender: UCB
  Company Number: US-UCBSA-2025023519

PATIENT
  Age: 48 Year
  Sex: Male

DRUGS (2)
  1. BIMZELX [Suspect]
     Active Substance: BIMEKIZUMAB-BKZX
     Indication: Psoriasis
     Dosage: 320 MILLIGRAM, EV 4 WEEKS
     Route: 058
     Dates: start: 202502
  2. TALTZ [Concomitant]
     Active Substance: IXEKIZUMAB
     Indication: Product used for unknown indication

REACTIONS (4)
  - Incorrect dose administered [Unknown]
  - Device issue [Unknown]
  - Wrong technique in product usage process [Unknown]
  - Device malfunction [Unknown]

NARRATIVE: CASE EVENT DATE: 20250416
